FAERS Safety Report 11415971 (Version 1)
Quarter: 2015Q3

REPORT INFORMATION
  Report Type: Spontaneous
  Country: JP (occurrence: JP)
  Receive Date: 20150825
  Receipt Date: 20150825
  Transmission Date: 20151125
  Serious: Yes (Hospitalization, Other)
  Sender: FDA-Public Use
  Company Number: JP-GLAXOSMITHKLINE INC.-JP2015JPN036922

PATIENT
  Sex: Female

DRUGS (2)
  1. TYKERB [Suspect]
     Active Substance: LAPATINIB DITOSYLATE
     Indication: BREAST CANCER
     Dosage: 1250 MG, UNK
     Route: 048
     Dates: start: 20150130
  2. CAPECITABINE. [Suspect]
     Active Substance: CAPECITABINE
     Route: 048

REACTIONS (2)
  - Seizure [Recovered/Resolved]
  - Platelet count decreased [Recovered/Resolved]

NARRATIVE: CASE EVENT DATE: 201502
